FAERS Safety Report 25200452 (Version 3)
Quarter: 2025Q2

REPORT INFORMATION
  Report Type: Spontaneous
  Country: CO (occurrence: CO)
  Receive Date: 20250415
  Receipt Date: 20250505
  Transmission Date: 20250717
  Serious: Yes (Death, Hospitalization)
  Sender: BAYER HEALTHCARE PHARMACEUTICALS INC.
  Company Number: CO-BAYER-2025A050286

PATIENT
  Age: 58 Year
  Sex: Female

DRUGS (1)
  1. NEXAVAR [Suspect]
     Active Substance: SORAFENIB
     Indication: Thyroid cancer
     Dosage: 200 MG, BID
     Route: 031
     Dates: start: 202501

REACTIONS (4)
  - Cardiac arrest [Fatal]
  - Product use issue [None]
  - Hospitalisation [None]
  - Decubitus ulcer [None]

NARRATIVE: CASE EVENT DATE: 20250101
